FAERS Safety Report 8222363-1 (Version None)
Quarter: 2012Q1

REPORT INFORMATION
  Report Type: 
  Country: None (occurrence: None)
  Receive Date: 20120320
  Receipt Date: 20120319
  Transmission Date: 20120608
  Serious: No
  Sender: FDA-Public Use
  Company Number: US-BAYER-2012-026951

PATIENT
  Age: 75 Year
  Sex: Male

DRUGS (2)
  1. AVELOX [Suspect]
     Dosage: 400 MG, QD
     Route: 048
     Dates: start: 20120316
  2. DIGOXIN [Concomitant]
     Indication: CARDIAC FIBRILLATION
     Dosage: 25 MG, QD

REACTIONS (3)
  - CHANGE OF BOWEL HABIT [None]
  - HALLUCINATION [None]
  - ABDOMINAL DISCOMFORT [None]
